FAERS Safety Report 5688972-9 (Version None)
Quarter: 2008Q1

REPORT INFORMATION
  Report Type: 
  Country: None (occurrence: None)
  Receive Date: 20080331
  Receipt Date: 20060606
  Transmission Date: 20080703
  Serious: Yes (Death)
  Sender: FDA-Public Use
  Company Number: RO-ROCHE-450713

PATIENT
  Age: 57 Year
  Sex: Male

DRUGS (3)
  1. PEGASYS [Suspect]
     Dosage: FORM REPORTED AS PREFILLED SYRINGES.
     Route: 058
     Dates: start: 20051201, end: 20060416
  2. COPEGUS [Suspect]
     Dosage: STRENGTH: 200 MG
     Route: 048
     Dates: start: 20051201, end: 20060416
  3. INSULIN [Concomitant]
     Dates: end: 20060416

REACTIONS (1)
  - DEATH [None]
